FAERS Safety Report 13879438 (Version 1)
Quarter: 2017Q3

REPORT INFORMATION
  Report Type: Spontaneous
  Country: US (occurrence: US)
  Receive Date: 20170817
  Receipt Date: 20170817
  Transmission Date: 20171127
  Serious: No
  Sender: FDA-Public Use
  Company Number: US-TEIKOKU PHARMA USA-TPU2017-00401

PATIENT
  Sex: Female
  Weight: 63.56 kg

DRUGS (1)
  1. LIDOCAINE PATCH [Suspect]
     Active Substance: LIDOCAINE
     Indication: PRODUCT USED FOR UNKNOWN INDICATION
     Dosage: 1 PATCH APPLIED TO THE LOWER RIGHT-HAND SIDE OF STOMACH, ALMOST INTO THE GROIN AREA. APPLY FOR 12 HO
     Route: 061
     Dates: start: 20170626

REACTIONS (2)
  - Incorrect drug administration duration [Unknown]
  - Drug effect incomplete [Unknown]
